FAERS Safety Report 16086956 (Version 1)
Quarter: 2019Q1

REPORT INFORMATION
  Report Type: Report from Study
  Country: None (occurrence: BR)
  Receive Date: 20190318
  Receipt Date: 20190318
  Transmission Date: 20190418
  Serious: Yes (Death, Hospitalization, Other)
  Sender: FDA-Public Use
  Company Number: BR-ABBVIE-19K-020-2707829-00

PATIENT
  Age: 77 Year
  Sex: Male
  Weight: 84 kg

DRUGS (1)
  1. HUMIRA [Suspect]
     Active Substance: ADALIMUMAB
     Indication: RHEUMATOID ARTHRITIS
     Route: 058
     Dates: start: 20170102

REACTIONS (2)
  - Vital functions abnormal [Not Recovered/Not Resolved]
  - Pulmonary embolism [Fatal]

NARRATIVE: CASE EVENT DATE: 20181227
